FAERS Safety Report 23979819 (Version 1)
Quarter: 2024Q2

REPORT INFORMATION
  Report Type: Spontaneous
  Country: GB (occurrence: GB)
  Receive Date: 20240616
  Receipt Date: 20240616
  Transmission Date: 20240716
  Serious: Yes (Other)
  Sender: FDA-Public Use
  Company Number: None

PATIENT

DRUGS (4)
  1. BENZOYL PEROXIDE\CLINDAMYCIN PHOSPHATE [Suspect]
     Active Substance: BENZOYL PEROXIDE\CLINDAMYCIN PHOSPHATE
     Indication: Acne
     Dosage: 5 %, QD (5% BENZOYL PEROXIDE/ 1% CLINDAMYCINAPPLY THINLY)
     Route: 061
     Dates: start: 20240612
  2. HAVRIX [Concomitant]
     Active Substance: HEPATITIS A VIRUS STRAIN HM175 ANTIGEN (FORMALDEHYDE INACTIVATED)
     Indication: Product used for unknown indication
     Dosage: UNK
     Route: 065
     Dates: start: 20240531, end: 20240601
  3. TYPHIM VI [Concomitant]
     Active Substance: SALMONELLA TYPHI TY2 VI POLYSACCHARIDE ANTIGEN
     Indication: Product used for unknown indication
     Dosage: UNK
     Route: 065
     Dates: start: 20240531, end: 20240601
  4. LYMECYCLINE [Concomitant]
     Active Substance: LYMECYCLINE
     Indication: Acne
     Dosage: 1 DF, QD
     Route: 048
     Dates: start: 20240612

REACTIONS (1)
  - Swelling face [Unknown]

NARRATIVE: CASE EVENT DATE: 20240612
